FAERS Safety Report 12134277 (Version 2)
Quarter: 2016Q2

REPORT INFORMATION
  Report Type: Spontaneous
  Country: US (occurrence: US)
  Receive Date: 20160301
  Receipt Date: 20160422
  Transmission Date: 20160815
  Serious: Yes (Hospitalization, Other)
  Sender: FDA-Public Use
  Company Number: US-GLAXOSMITHKLINE-US2016025820

PATIENT
  Age: 72 Year
  Sex: Female

DRUGS (8)
  1. TOPROL XL [Concomitant]
     Active Substance: METOPROLOL SUCCINATE
  2. ESTRADIOL. [Concomitant]
     Active Substance: ESTRADIOL
  3. SYNTHROID [Concomitant]
     Active Substance: LEVOTHYROXINE SODIUM
  4. EFFEXOR XR EXTENDED-RELEASE [Concomitant]
     Active Substance: VENLAFAXINE HYDROCHLORIDE
  5. ADVAIR DISKUS [Suspect]
     Active Substance: FLUTICASONE PROPIONATE\SALMETEROL XINAFOATE
     Indication: CHRONIC OBSTRUCTIVE PULMONARY DISEASE
     Dosage: 1 PUFF(S), BID
     Route: 055
     Dates: start: 20150226, end: 20150304
  6. CELEBREX [Concomitant]
     Active Substance: CELECOXIB
  7. COUMADIN [Concomitant]
     Active Substance: WARFARIN SODIUM
  8. TYLENOL [Concomitant]
     Active Substance: ACETAMINOPHEN

REACTIONS (6)
  - Dysstasia [Unknown]
  - Sepsis [Recovered/Resolved]
  - Spinal operation [Unknown]
  - Wound infection staphylococcal [Recovered/Resolved]
  - Gait disturbance [Unknown]
  - Asthenia [Recovered/Resolved]

NARRATIVE: CASE EVENT DATE: 201502
